FAERS Safety Report 7202164-3 (Version None)
Quarter: 2010Q4

REPORT INFORMATION
  Report Type: 
  Country: None (occurrence: None)
  Receive Date: 20101229
  Receipt Date: 20101216
  Transmission Date: 20110411
  Serious: Yes (Other)
  Sender: FDA-Public Use
  Company Number: PHHY2010BR85755

PATIENT
  Sex: Male
  Weight: 110 kg

DRUGS (1)
  1. FORASEQ [Suspect]
     Indication: DYSPNOEA
     Dosage: 1 DF, BID

REACTIONS (4)
  - BLISTER [None]
  - FLUID RETENTION [None]
  - INSOMNIA [None]
  - OEDEMA PERIPHERAL [None]
